FAERS Safety Report 22028016 (Version 1)
Quarter: 2023Q1

REPORT INFORMATION
  Report Type: Spontaneous
  Country: US (occurrence: None)
  Receive Date: 20230223
  Receipt Date: 20230223
  Transmission Date: 20230417
  Serious: No
  Sender: FDA-Public Use
  Company Number: US-ROCHE-3169794

PATIENT
  Sex: Female

DRUGS (3)
  1. PHESGO [Suspect]
     Active Substance: HYALURONIDASE-ZZXF\PERTUZUMAB\TRASTUZUMAB
     Indication: HER2 positive breast cancer
     Route: 058
     Dates: start: 20220616
  2. PERJETA [Suspect]
     Active Substance: PERTUZUMAB
     Indication: HER2 positive breast cancer
     Dosage: 6 ROUNDS EVERY 3 WEEKS
     Route: 042
     Dates: start: 20211210, end: 202206
  3. HERCEPTIN [Suspect]
     Active Substance: TRASTUZUMAB
     Indication: HER2 positive breast cancer
     Dosage: 6 ROUNDS EVERY 3 WEEKS
     Route: 041
     Dates: start: 20211210, end: 202206

REACTIONS (1)
  - Hair disorder [Not Recovered/Not Resolved]
